FAERS Safety Report 25747812 (Version 1)
Quarter: 2025Q3

REPORT INFORMATION
  Report Type: Spontaneous
  Country: US (occurrence: US)
  Receive Date: 20250901
  Receipt Date: 20250901
  Transmission Date: 20251021
  Serious: Yes (Hospitalization)
  Sender: NOVARTIS
  Company Number: US-002147023-NVSC2025US135366

PATIENT
  Age: 59 Year
  Sex: Female
  Weight: 42.177 kg

DRUGS (2)
  1. LETROZOLE [Interacting]
     Active Substance: LETROZOLE
     Indication: Product used for unknown indication
     Route: 065
  2. IBRANCE [Interacting]
     Active Substance: PALBOCICLIB
     Indication: Product used for unknown indication
     Route: 065

REACTIONS (7)
  - Infectious pleural effusion [Unknown]
  - Pericardial effusion [Unknown]
  - Abdominal pain upper [Unknown]
  - Taste disorder [Unknown]
  - Decreased appetite [Unknown]
  - Abdominal discomfort [Unknown]
  - Drug interaction [Unknown]
